FAERS Safety Report 9159469 (Version 2)
Quarter: 2013Q1

REPORT INFORMATION
  Report Type: Spontaneous
  Country: PY (occurrence: PY)
  Receive Date: 20130313
  Receipt Date: 20130319
  Transmission Date: 20140127
  Serious: Yes (Death, Other)
  Sender: FDA-Public Use
  Company Number: PHHY2013PY024194

PATIENT
  Sex: Male

DRUGS (1)
  1. GLIVEC [Suspect]
     Indication: CHRONIC MYELOID LEUKAEMIA
     Dosage: 400 MG, UNK
     Route: 048
     Dates: start: 201110

REACTIONS (7)
  - Completed suicide [Fatal]
  - Oedema [Fatal]
  - Bone pain [Fatal]
  - Aggression [Fatal]
  - No therapeutic response [Fatal]
  - Chromosome analysis abnormal [Fatal]
  - Anger [Unknown]
